FAERS Safety Report 9408922 (Version 1)
Quarter: 2013Q3

REPORT INFORMATION
  Report Type: Spontaneous
  Country: NL (occurrence: NL)
  Receive Date: 20130719
  Receipt Date: 20130719
  Transmission Date: 20140515
  Serious: Yes (Death, Hospitalization)
  Sender: FDA-Public Use
  Company Number: NL-TEVA-418195ISR

PATIENT
  Sex: Male

DRUGS (1)
  1. DICLOFENAC [Suspect]

REACTIONS (3)
  - Gastric perforation [Unknown]
  - Sepsis [Fatal]
  - Multi-organ failure [Fatal]
